FAERS Safety Report 17408737 (Version 1)
Quarter: 2020Q1

REPORT INFORMATION
  Report Type: Spontaneous
  Country: US (occurrence: US)
  Receive Date: 20200212
  Receipt Date: 20200212
  Transmission Date: 20200409
  Serious: Yes (Hospitalization)
  Sender: FDA-Public Use
  Company Number: US-LUNDBECK-DKLU3011540

PATIENT
  Age: 1 Year
  Sex: Male
  Weight: 11 kg

DRUGS (2)
  1. SABRIL [Suspect]
     Active Substance: VIGABATRIN
     Indication: TUBEROUS SCLEROSIS COMPLEX
     Route: 048
     Dates: start: 201904
  2. SABRIL [Suspect]
     Active Substance: VIGABATRIN
     Indication: SEIZURE

REACTIONS (2)
  - Status epilepticus [Recovered/Resolved]
  - Seizure [Recovered/Resolved]

NARRATIVE: CASE EVENT DATE: 20200117
